FAERS Safety Report 9389060 (Version 2)
Quarter: 2013Q3

REPORT INFORMATION
  Report Type: Spontaneous
  Country: IT (occurrence: IT)
  Receive Date: 20130708
  Receipt Date: 20130712
  Transmission Date: 20140515
  Serious: Yes (Hospitalization)
  Sender: FDA-Public Use
  Company Number: PHHY2013IT071754

PATIENT
  Age: 82 Year
  Sex: Female

DRUGS (2)
  1. TOLEP [Suspect]
     Indication: PARTIAL SEIZURES
     Dosage: 900 MG, DAILY
     Route: 048
     Dates: start: 20130618, end: 20130625
  2. WARFARIN [Concomitant]

REACTIONS (2)
  - Bradyphrenia [Recovered/Resolved]
  - Hyponatraemia [Recovered/Resolved]
